FAERS Safety Report 8369858-8 (Version None)
Quarter: 2012Q1

REPORT INFORMATION
  Report Type: 
  Country: None (occurrence: None)
  Receive Date: 20120323
  Receipt Date: 20110922
  Transmission Date: 20120608
  Serious: Yes (Other)
  Sender: FDA-Public Use
  Company Number: 163-21880-11081072

PATIENT
  Age: 68 Year
  Sex: Male
  Weight: 63.9572 kg

DRUGS (6)
  1. POTASSIUM CHLORIDE [Concomitant]
  2. LOMOTIL [Concomitant]
  3. LIPITOR [Concomitant]
  4. ZOMETA [Concomitant]
  5. REVLIMID [Suspect]
     Indication: MULTIPLE MYELOMA
     Dosage: 25 MG, DAILY X 21 DAYS, PO
     Route: 048
     Dates: start: 20110526, end: 20110808
  6. AVODART [Concomitant]

REACTIONS (2)
  - PLATELET COUNT DECREASED [None]
  - WHITE BLOOD CELL COUNT DECREASED [None]
